FAERS Safety Report 4662946-9 (Version None)
Quarter: 2005Q2

REPORT INFORMATION
  Report Type: 
  Country: None (occurrence: None)
  Receive Date: 20050513
  Receipt Date: 20050411
  Transmission Date: 20051028
  Serious: Yes (Other)
  Sender: FDA-Public Use
  Company Number: 2005S1002112

PATIENT
  Age: 34 Year
  Sex: Female
  Weight: 89.3586 kg

DRUGS (7)
  1. FENTANYL [Suspect]
     Indication: POST PROCEDURAL COMPLICATION
     Dosage: 100 MCGL TRDL
     Route: 062
     Dates: start: 20050407, end: 20050408
  2. PARACETAMOL/OXYCODONE [Concomitant]
  3. HYDROCHLORIDE [Concomitant]
  4. OXCARBAZEPINE [Concomitant]
  5. ESCITALOPRAM OXALATE [Concomitant]
  6. RISPERIDONE [Concomitant]
  7. NICOTINIC ACID/LOVASTATIN [Concomitant]

REACTIONS (8)
  - CARDIAC FLUTTER [None]
  - DRUG EFFECT INCREASED [None]
  - DYSKINESIA [None]
  - GRAND MAL CONVULSION [None]
  - PETIT MAL EPILEPSY [None]
  - PHARMACEUTICAL PRODUCT COMPLAINT [None]
  - RESPIRATORY DISORDER [None]
  - SPEECH DISORDER [None]
